FAERS Safety Report 9473282 (Version 2)
Quarter: 2013Q3

REPORT INFORMATION
  Report Type: Spontaneous
  Country: US (occurrence: US)
  Receive Date: 20130823
  Receipt Date: 20130823
  Transmission Date: 20140515
  Serious: No
  Sender: FDA-Public Use
  Company Number: US-BRISTOL-MYERS SQUIBB COMPANY-18838375

PATIENT
  Age: 65 Year
  Sex: Female
  Weight: 46.26 kg

DRUGS (8)
  1. SPRYCEL (CML) TABS 50 MG [Suspect]
     Indication: CHRONIC MYELOID LEUKAEMIA
     Dates: start: 20130301
  2. HCTZ [Concomitant]
  3. POTASSIUM CHLORIDE [Concomitant]
  4. ZOCOR [Concomitant]
  5. CENTRUM [Concomitant]
  6. VALTREX [Concomitant]
     Indication: ORAL HERPES
  7. LUNESTA [Concomitant]
  8. TYLENOL [Concomitant]

REACTIONS (5)
  - Helicobacter infection [Unknown]
  - Extrasystoles [Unknown]
  - Dyspnoea [Unknown]
  - Abdominal pain lower [Unknown]
  - Nausea [Unknown]
